FAERS Safety Report 13547839 (Version 1)
Quarter: 2017Q2

REPORT INFORMATION
  Report Type: Spontaneous
  Country: US (occurrence: US)
  Receive Date: 20170516
  Receipt Date: 20170516
  Transmission Date: 20170830
  Serious: No
  Sender: FDA-Public Use
  Company Number: US-BAUSCH-BL-2016-015795

PATIENT
  Age: 75 Year
  Sex: Female

DRUGS (1)
  1. LATANOPROST OPHTHALMIC SOLUTION 0.005% [Suspect]
     Active Substance: LATANOPROST
     Indication: DRY EYE
     Dosage: 3 YEARS AGO
     Route: 047

REACTIONS (2)
  - Application site discolouration [Not Recovered/Not Resolved]
  - Eye irritation [Not Recovered/Not Resolved]
